FAERS Safety Report 6558143-2 (Version None)
Quarter: 2010Q1

REPORT INFORMATION
  Report Type: 
  Country: None (occurrence: None)
  Receive Date: 20100129
  Receipt Date: 20100121
  Transmission Date: 20100710
  Serious: Yes (Hospitalization)
  Sender: FDA-Public Use
  Company Number: B0629489A

PATIENT
  Sex: Female

DRUGS (2)
  1. TOPOTECAN [Suspect]
     Indication: CERVIX CARCINOMA
     Dates: start: 20100105, end: 20100112
  2. CARBOPLATIN [Suspect]
     Indication: CERVIX CARCINOMA
     Dates: start: 20100105, end: 20100105

REACTIONS (3)
  - HYPERTHERMIA [None]
  - NEUTROPENIA [None]
  - THROMBOCYTOPENIA [None]
